FAERS Safety Report 9184743 (Version 7)
Quarter: 2013Q4

REPORT INFORMATION
  Report Type: Report from Study
  Country: CA (occurrence: CA)
  Receive Date: 20130324
  Receipt Date: 20131014
  Transmission Date: 20140711
  Serious: Yes (Life-Threatening, Hospitalization, Other)
  Sender: FDA-Public Use
  Company Number: CA-ROCHE-1198067

PATIENT
  Age: 60 Year
  Sex: Female
  Weight: 74 kg

DRUGS (3)
  1. PEG-INTERFERON ALFA 2A [Suspect]
     Indication: CHRONIC HEPATITIS C
     Dosage: LAST DOSE ON 04/MAR/2013.
     Route: 058
     Dates: start: 20121119, end: 20130305
  2. RIBAVIRIN [Suspect]
     Indication: CHRONIC HEPATITIS C
     Dosage: LAST DOSE ON 04/MAR/2013.
     Route: 048
     Dates: start: 20121119, end: 20130305
  3. BI 201335 [Suspect]
     Indication: CHRONIC HEPATITIS C
     Route: 048
     Dates: start: 20121119

REACTIONS (7)
  - Mallory-Weiss syndrome [Recovered/Resolved]
  - Liver disorder [Recovered/Resolved]
  - Hepatic failure [Recovered/Resolved]
  - Pneumonia [Recovered/Resolved]
  - Ascites [Recovered/Resolved]
  - Vomiting [Recovered/Resolved]
  - Oropharyngeal pain [Recovered/Resolved]
